FAERS Safety Report 14728843 (Version 1)
Quarter: 2018Q2

REPORT INFORMATION
  Report Type: Spontaneous
  Country: JP (occurrence: JP)
  Receive Date: 20180406
  Receipt Date: 20180406
  Transmission Date: 20180711
  Serious: Yes (Other)
  Sender: FDA-Public Use
  Company Number: JP-MYLANLABS-2018M1021976

PATIENT
  Sex: Male

DRUGS (1)
  1. TACROLIMUS. [Suspect]
     Active Substance: TACROLIMUS
     Indication: ORAL LICHEN PLANUS
     Dosage: USING THRICE A DAY INSTEAD OF THE RECOMMENDED TWICE DAILY USE
     Route: 061

REACTIONS (2)
  - Lip squamous cell carcinoma [Recovered/Resolved]
  - Intentional product misuse [Recovered/Resolved]
